FAERS Safety Report 25352001 (Version 1)
Quarter: 2025Q2

REPORT INFORMATION
  Report Type: Spontaneous
  Country: CA (occurrence: CA)
  Receive Date: 20250523
  Receipt Date: 20250523
  Transmission Date: 20250717
  Serious: Yes (Hospitalization)
  Sender: PFIZER
  Company Number: CA-PFIZER INC-202500104976

PATIENT
  Age: 84 Year
  Sex: Male
  Weight: 100 kg

DRUGS (22)
  1. FRAGMIN [Suspect]
     Active Substance: DALTEPARIN SODIUM
     Indication: Aortic valve replacement
     Dosage: 10000 UNITS (2 EVERY 1 DAY)
     Route: 042
  2. WARFARIN [Suspect]
     Active Substance: WARFARIN
     Dosage: 5 MG, 1X/DAY
     Route: 048
  3. WARFARIN [Suspect]
     Active Substance: WARFARIN
     Dosage: 2.5 MG, 1X/DAY
     Route: 048
  4. WARFARIN [Suspect]
     Active Substance: WARFARIN
     Dosage: 2.5 MG, 1X/DAY
     Route: 048
  5. ALLOPURINOL [Concomitant]
     Active Substance: ALLOPURINOL
  6. ANUSOL HC [Concomitant]
     Active Substance: HYDROCORTISONE
  7. ATORVASTATIN [Concomitant]
     Active Substance: ATORVASTATIN
  8. BISOPROLOL [Concomitant]
     Active Substance: BISOPROLOL
  9. DOCUSATE SODIUM [Concomitant]
     Active Substance: DOCUSATE SODIUM
  10. DUTASTERIDE [Concomitant]
     Active Substance: DUTASTERIDE
  11. FERROUS SULFATE [Concomitant]
     Active Substance: FERROUS SULFATE
  12. FUROSEMIDE [Concomitant]
     Active Substance: FUROSEMIDE
  13. INSULIN GLARGINE [Suspect]
     Active Substance: INSULIN GLARGINE
     Route: 058
  14. IRON SUCROSE [Concomitant]
     Active Substance: IRON SUCROSE
     Route: 042
  15. INSULIN LISPRO [Concomitant]
     Active Substance: INSULIN LISPRO
  16. PANTOPRAZOLE [Concomitant]
     Active Substance: PANTOPRAZOLE
     Route: 042
  17. POLYETHYLENE GLYCOL, UNSPECIFIED [Concomitant]
     Active Substance: POLYETHYLENE GLYCOL, UNSPECIFIED
  18. SPIRONOLACTONE [Concomitant]
     Active Substance: SPIRONOLACTONE
  19. TAMSULOSIN [Concomitant]
     Active Substance: TAMSULOSIN
  20. TEMAZEPAM [Concomitant]
     Active Substance: TEMAZEPAM
  21. LINAGLIPTIN [Concomitant]
     Active Substance: LINAGLIPTIN
  22. VITAMIN D NOS [Concomitant]
     Active Substance: CHOLECALCIFEROL\ERGOCALCIFEROL

REACTIONS (2)
  - Haemorrhoids [Unknown]
  - Lower gastrointestinal haemorrhage [Unknown]
